FAERS Safety Report 6448600-1 (Version None)
Quarter: 2009Q4

REPORT INFORMATION
  Report Type: 
  Country: None (occurrence: None)
  Receive Date: 20091120
  Receipt Date: 20091116
  Transmission Date: 20100525
  Serious: Yes (Other)
  Sender: FDA-Public Use
  Company Number: US-SANOFI-AVENTIS-2009SA002229

PATIENT
  Age: 57 Year
  Sex: Male

DRUGS (2)
  1. AMBIEN [Suspect]
     Route: 048
  2. ALCOHOL [Suspect]
     Route: 048

REACTIONS (2)
  - IMPAIRED DRIVING ABILITY [None]
  - SOMNAMBULISM [None]
